FAERS Safety Report 8500228-5 (Version None)
Quarter: 2012Q3

REPORT INFORMATION
  Report Type: 
  Country: None (occurrence: None)
  Receive Date: 20120710
  Receipt Date: 20120704
  Transmission Date: 20120928
  Serious: Yes (Hospitalization, Other)
  Sender: FDA-Public Use
  Company Number: PHHY2012DK058684

PATIENT
  Sex: Female

DRUGS (4)
  1. TAXOL [Suspect]
     Indication: UTERINE CANCER
     Dates: start: 20100503
  2. CARBOPLATIN [Suspect]
     Dates: start: 20100901
  3. CARBOPLATIN [Suspect]
     Indication: UTERINE CANCER
     Dates: start: 20100503
  4. TAXOL [Suspect]
     Dates: start: 20100901

REACTIONS (6)
  - EPILEPSY [None]
  - QUALITY OF LIFE DECREASED [None]
  - MYOCLONIC EPILEPSY [None]
  - PAIN IN EXTREMITY [None]
  - DISCOMFORT [None]
  - FATIGUE [None]
